FAERS Safety Report 19003090 (Version 3)
Quarter: 2021Q3

REPORT INFORMATION
  Report Type: Other
  Country: JP (occurrence: JP)
  Receive Date: 20210312
  Receipt Date: 20210729
  Transmission Date: 20211014
  Serious: Yes (Life-Threatening, Hospitalization, Other)
  Sender: FDA-Public Use
  Company Number: JP-ROCHE-2785905

PATIENT
  Age: 78 Year
  Sex: Male
  Weight: 55 kg

DRUGS (3)
  1. CARBOPLATIN. [Suspect]
     Active Substance: CARBOPLATIN
     Indication: LUNG ADENOCARCINOMA
     Dosage: DOSAGE: 340 (UNIT UNCERTAINTY) AND DOSE INTERVAL UNCERTAINTY
     Route: 041
     Dates: start: 20200901, end: 20201014
  2. ATEZOLIZUMAB. [Suspect]
     Active Substance: ATEZOLIZUMAB
     Indication: LUNG ADENOCARCINOMA
     Dosage: DOSAGE: 1200 (UNIT UNCERTAINTY)?MOST RECENT DOSE RECEIVED PRIOR TO THE EVENTS ONSET ON 14/OCT/2020
     Route: 041
     Dates: start: 20200901
  3. PACLITAXEL ALBUMIN [Suspect]
     Active Substance: PACLITAXEL
     Indication: LUNG ADENOCARCINOMA
     Dosage: DOSAGE: 159 (UNIT UNCERTAINTY) AND DOSE INTERVAL UNCERTAINTY
     Route: 041
     Dates: start: 20200901, end: 20201028

REACTIONS (5)
  - Hypersensitivity [Recovering/Resolving]
  - Neutropenia [Recovered/Resolved]
  - Decreased appetite [Recovering/Resolving]
  - Colitis [Recovering/Resolving]
  - Adrenocorticotropic hormone deficiency [Recovered/Resolved with Sequelae]

NARRATIVE: CASE EVENT DATE: 20200901
